FAERS Safety Report 7168022-8 (Version None)
Quarter: 2010Q4

REPORT INFORMATION
  Report Type: 
  Country: None (occurrence: None)
  Receive Date: 20101216
  Receipt Date: 20101129
  Transmission Date: 20110411
  Serious: No
  Sender: FDA-Public Use
  Company Number: US-B.I. PHARMACEUTICALS,INC./RIDGEFIELD-2010-BP-13602BP

PATIENT
  Age: 68 Year
  Sex: Female

DRUGS (11)
  1. PRADAXA [Suspect]
     Indication: THROMBOSIS
     Dosage: 300 MG
     Route: 048
     Dates: start: 20101115
  2. CLONIDINE [Concomitant]
     Indication: HYPERTENSION
  3. BUMETANIDE [Concomitant]
     Indication: DIURETIC THERAPY
     Dosage: 1 MG
  4. BUMETANIDE [Concomitant]
     Indication: HYPERTENSION
  5. SIMVASTATIN [Concomitant]
     Indication: BLOOD CHOLESTEROL INCREASED
  6. NITROGLYCERIN [Concomitant]
     Indication: CARDIAC DISORDER
     Dosage: 19.5 MG
  7. ATENOLOL [Concomitant]
     Indication: HYPERTENSION
     Dosage: 200 MG
  8. GLYBURIDE [Concomitant]
     Indication: DIABETES MELLITUS
     Dosage: 1.25 MG
  9. LASIX [Concomitant]
     Indication: HYPERTENSION
     Dosage: 40 MG
  10. POTASSIUM CHLORIDE [Concomitant]
     Indication: SUPPLEMENTATION THERAPY
  11. PREDNISONE [Concomitant]
     Indication: GOUT

REACTIONS (2)
  - CARDIAC FLUTTER [None]
  - VISUAL IMPAIRMENT [None]
